FAERS Safety Report 19050601 (Version 1)
Quarter: 2021Q1

REPORT INFORMATION
  Report Type: Report from Study
  Country: IT (occurrence: IT)
  Receive Date: 20210323
  Receipt Date: 20210323
  Transmission Date: 20210420
  Serious: Yes (Other)
  Sender: FDA-Public Use
  Company Number: IT-INCYTE CORPORATION-2021IN002513

PATIENT

DRUGS (4)
  1. JAKAVI [Suspect]
     Active Substance: RUXOLITINIB
     Indication: POLYCYTHAEMIA VERA
     Dosage: 20 UNK
     Route: 048
     Dates: start: 20181120, end: 20190408
  2. JAKAVI [Suspect]
     Active Substance: RUXOLITINIB
     Dosage: 10 UNK
     Route: 048
     Dates: start: 201904, end: 201904
  3. JAKAVI [Suspect]
     Active Substance: RUXOLITINIB
     Dosage: 15 UNK
     Route: 048
     Dates: start: 20190409, end: 201904
  4. JAKAVI [Suspect]
     Active Substance: RUXOLITINIB
     Dosage: 5 UNK
     Route: 048
     Dates: start: 201904, end: 20190518

REACTIONS (1)
  - Intra-abdominal haemangioma [Unknown]

NARRATIVE: CASE EVENT DATE: 20190408
